FAERS Safety Report 20200653 (Version 2)
Quarter: 2022Q1

REPORT INFORMATION
  Report Type: Other
  Country: US (occurrence: None)
  Receive Date: 20211217
  Receipt Date: 20220110
  Transmission Date: 20220423
  Serious: Yes (Other)
  Sender: FDA-Public Use
  Company Number: US-ROCHE-2976516

PATIENT
  Age: 45 Year
  Sex: Male
  Weight: 158.90 kg

DRUGS (5)
  1. OCREVUS [Suspect]
     Active Substance: OCRELIZUMAB
     Indication: Relapsing-remitting multiple sclerosis
     Dosage: HAD 2 DOSES OF 300 MG IN /JUL/2021 AND WILL START 600 MG INFUSION IN /MAR/2022, 300MG ON DAY1 AND DA
     Route: 042
     Dates: start: 20210709
  2. ESCITALOPRAM [Concomitant]
     Active Substance: ESCITALOPRAM OXALATE
     Dosage: STARTED 5 TO 6 YEARS AGO
     Route: 048
  3. OMEPRAZOLE [Concomitant]
     Active Substance: OMEPRAZOLE
     Dosage: STARTED PROBABLY 19 YEARS AGO
     Route: 048
  4. VITAMIN B12 [Concomitant]
     Active Substance: CYANOCOBALAMIN
     Route: 048
     Dates: start: 202102
  5. PFIZER-BIONTECH COVID-19 VACCINE [Concomitant]
     Active Substance: TOZINAMERAN
     Dates: start: 20210303, end: 20210324

REACTIONS (4)
  - COVID-19 pneumonia [Recovered/Resolved]
  - Tremor [Unknown]
  - Somnolence [Unknown]
  - Dyspepsia [Unknown]

NARRATIVE: CASE EVENT DATE: 20211112
